FAERS Safety Report 10798326 (Version 1)
Quarter: 2015Q1

REPORT INFORMATION
  Report Type: Spontaneous
  Country: US (occurrence: US)
  Receive Date: 20150216
  Receipt Date: 20150216
  Transmission Date: 20150721
  Serious: Yes (Hospitalization)
  Sender: FDA-Public Use
  Company Number: PHHY2015US016099

PATIENT
  Age: 17 Year
  Sex: Male

DRUGS (6)
  1. DEFERASIROX [Suspect]
     Active Substance: DEFERASIROX
     Dosage: 500 MG, UNK
     Route: 065
  2. DEFERASIROX [Suspect]
     Active Substance: DEFERASIROX
     Dosage: 1500 MG, UNK
     Route: 065
  3. DEFERASIROX [Suspect]
     Active Substance: DEFERASIROX
     Dosage: 1000 MG, UNK
     Route: 065
  4. DEFERASIROX [Suspect]
     Active Substance: DEFERASIROX
     Dosage: 2000 MG, UNK
     Route: 065
  5. DEFERASIROX [Suspect]
     Active Substance: DEFERASIROX
     Dosage: 750 MG, UNK
     Route: 065
  6. DEFERASIROX [Suspect]
     Active Substance: DEFERASIROX
     Indication: IRON OVERLOAD
     Dosage: UNK
     Route: 065

REACTIONS (5)
  - Rash maculo-papular [Recovered/Resolved]
  - Pyrexia [Unknown]
  - Pruritus [Unknown]
  - Flushing [Unknown]
  - Drug intolerance [Unknown]
